FAERS Safety Report 8863941 (Version 1)
Quarter: 2012Q4

REPORT INFORMATION
  Report Type: 
  Country: US (occurrence: US)
  Receive Date: 20121024
  Receipt Date: 20121024
  Transmission Date: 20130627
  Serious: No
  Sender: FDA-Public Use
  Company Number: US-AMGEN-USASP2011065117

PATIENT
  Age: 58 Year
  Weight: 136.5 kg

DRUGS (19)
  1. ENBREL [Suspect]
     Indication: RHEUMATOID ARTHRITIS
     Dosage: 50 mg, qwk
     Route: 048
  2. WELCHOL [Concomitant]
     Dosage: 625 mg, UNK
     Route: 048
  3. NEXIUM                             /01479302/ [Concomitant]
     Dosage: 40 mg, UNK
     Route: 048
  4. LISINOPRIL [Concomitant]
     Dosage: 40 mg, UNK
     Route: 048
  5. FOLIC ACID [Concomitant]
     Dosage: 1 mg, UNK
     Route: 048
  6. FLUOXETINE [Concomitant]
     Dosage: 40 mg, UNK
     Route: 048
  7. LIPITOR [Concomitant]
     Dosage: 40 mg, UNK
     Route: 048
  8. NORVASC [Concomitant]
     Dosage: 5 mg, UNK
     Route: 048
  9. LEVOXYL [Concomitant]
     Dosage: 125 mug, UNK
     Route: 048
  10. LORTAB                             /00607101/ [Concomitant]
     Route: 048
  11. MAGNESIUM [Concomitant]
     Dosage: 30 mg, UNK
     Route: 048
  12. FISH OIL [Concomitant]
     Dosage: 1400 mg, UNK
     Route: 048
  13. CALCIUM WITH VITAMIN D             /00944201/ [Concomitant]
     Route: 048
  14. CENTRUM SILVER                     /01292501/ [Concomitant]
     Route: 048
  15. GLUCOSAMIN CHONDR [Concomitant]
  16. VITAMIN E                          /00110501/ [Concomitant]
     Dosage: 1000 IU, UNK
     Route: 048
  17. ISONIAZID [Concomitant]
     Dosage: 100 mg, UNK
     Route: 048
  18. VITAMIN B 6 [Concomitant]
     Dosage: 100 mg, UNK
     Route: 048
  19. METHOTREXATE [Concomitant]
     Dosage: 50 mg, UNK
     Route: 058

REACTIONS (1)
  - Dry eye [Unknown]
